FAERS Safety Report 5986313-0 (Version None)
Quarter: 2008Q4

REPORT INFORMATION
  Report Type: 
  Country: None (occurrence: None)
  Receive Date: 20081209
  Receipt Date: 20080405
  Transmission Date: 20090506
  Serious: No
  Sender: FDA-Public Use
  Company Number: US-AMGEN-KDL273136

PATIENT
  Sex: Female

DRUGS (3)
  1. ENBREL [Suspect]
     Indication: JUVENILE ARTHRITIS
     Route: 058
     Dates: start: 20080313
  2. PLAQUENIL [Concomitant]
     Dates: start: 20070801
  3. METHOTREXATE [Concomitant]
     Route: 048
     Dates: start: 20070801

REACTIONS (1)
  - ORAL HERPES [None]
